FAERS Safety Report 5051286-4 (Version None)
Quarter: 2006Q3

REPORT INFORMATION
  Report Type: 
  Country: None (occurrence: None)
  Receive Date: 20060714
  Receipt Date: 20060530
  Transmission Date: 20061208
  Serious: Yes (Other)
  Sender: FDA-Public Use
  Company Number: DE-AVENTIS-200611590DE

PATIENT
  Age: 36 Year
  Sex: Female

DRUGS (1)
  1. CLEXANE [Suspect]
     Indication: PELVIC VENOUS THROMBOSIS
     Route: 058
     Dates: start: 20060501

REACTIONS (2)
  - ABORTION INDUCED [None]
  - DRUG EXPOSURE DURING PREGNANCY [None]
